FAERS Safety Report 13937090 (Version 1)
Quarter: 2017Q3

REPORT INFORMATION
  Report Type: Spontaneous
  Country: CH (occurrence: CH)
  Receive Date: 20170905
  Receipt Date: 20170905
  Transmission Date: 20171127
  Serious: Yes (Hospitalization, Other)
  Sender: FDA-Public Use
  Company Number: CH-PFIZER INC-2017382504

PATIENT
  Age: 78 Year
  Sex: Male

DRUGS (24)
  1. HEPARIN [Interacting]
     Active Substance: HEPARIN SODIUM
     Dosage: 70 MG, 2X/DAY (EVERY 12 HOURS)
     Route: 058
     Dates: start: 201606
  2. TOREM [Concomitant]
     Active Substance: TORSEMIDE
     Dosage: UNK
  3. JANUVIA [Concomitant]
     Active Substance: SITAGLIPTIN PHOSPHATE
     Dosage: UNK
  4. EUTHYROX [Concomitant]
     Active Substance: LEVOTHYROXINE SODIUM
     Dosage: UNK
     Dates: start: 20150129, end: 201606
  5. PANTOPRAZOLE [Concomitant]
     Active Substance: PANTOPRAZOLE
     Dosage: 40 MG, DAILY
     Dates: start: 20141120
  6. NEXIUM [Interacting]
     Active Substance: ESOMEPRAZOLE MAGNESIUM
     Dosage: 20 MG, 1X/DAY
     Route: 048
     Dates: start: 20140914, end: 20140918
  7. PASPERTIN [Concomitant]
     Active Substance: METOCLOPRAMIDE HYDROCHLORIDE
     Dosage: UNK
     Dates: start: 201502
  8. MOTILIUM [Interacting]
     Active Substance: DOMPERIDONE
     Dosage: 10 MG, 3X/DAY (3 TIMES A DAY)
     Route: 048
     Dates: start: 20150206, end: 20150210
  9. FLAGYL [Interacting]
     Active Substance: METRONIDAZOLE\METRONIDAZOLE HYDROCHLORIDE
     Dosage: UNK
     Route: 048
     Dates: start: 20161005, end: 20161028
  10. AUGMENTIN [Concomitant]
     Active Substance: AMOXICILLIN\CLAVULANATE POTASSIUM
     Dosage: UNK
  11. FLAGYL [Interacting]
     Active Substance: METRONIDAZOLE\METRONIDAZOLE HYDROCHLORIDE
     Indication: CLOSTRIDIUM DIFFICILE COLITIS
     Dosage: 500 MG, 3X/DAY (EVERY 8 HOURS)
     Route: 048
     Dates: start: 20141114, end: 20141124
  12. CORDARONE [Suspect]
     Active Substance: AMIODARONE HYDROCHLORIDE
     Indication: ATRIAL FIBRILLATION
     Dosage: 200 MG, 1X/DAY
     Route: 048
     Dates: start: 201406, end: 20141113
  13. NEXIUM [Interacting]
     Active Substance: ESOMEPRAZOLE MAGNESIUM
     Dosage: 40 MG, 2X/DAY
     Route: 048
     Dates: start: 20140914
  14. KLACID [Concomitant]
     Active Substance: CLARITHROMYCIN
     Dosage: UNK
     Dates: start: 20141113
  15. SERETIDE [Concomitant]
     Active Substance: FLUTICASONE PROPIONATE\SALMETEROL XINAFOATE
     Dosage: UNK
  16. ROCEPHINE [Concomitant]
     Active Substance: CEFTRIAXONE SODIUM
     Dosage: UNK
     Dates: start: 20161005, end: 20161028
  17. FLUCONAZOLE. [Concomitant]
     Active Substance: FLUCONAZOLE
     Dosage: 50 MG, DAILY
     Route: 048
     Dates: start: 20141112, end: 20141120
  18. NEXIUM [Interacting]
     Active Substance: ESOMEPRAZOLE MAGNESIUM
     Dosage: 8 MG, UNK (EVERY HOUR)
     Route: 041
     Dates: start: 20140910, end: 20140913
  19. DROPERIDOL. [Interacting]
     Active Substance: DROPERIDOL
     Dosage: 0.5 MG, UNK
     Route: 040
     Dates: start: 20150129, end: 20150210
  20. CO-AMOXICLAV [Interacting]
     Active Substance: AMOXICILLIN\CLAVULANIC ACID
     Dosage: UNK
     Route: 048
     Dates: start: 20160601, end: 20160610
  21. FLAGYL [Interacting]
     Active Substance: METRONIDAZOLE\METRONIDAZOLE HYDROCHLORIDE
     Dosage: UNK
     Route: 048
     Dates: start: 20160601, end: 20160610
  22. ZANIDIP [Concomitant]
     Active Substance: LERCANIDIPINE HYDROCHLORIDE
     Dosage: UNK
  23. PANTOZOL [Concomitant]
     Active Substance: PANTOPRAZOLE SODIUM
     Dosage: UNK
  24. ZALDIAR [Concomitant]
     Active Substance: ACETAMINOPHEN\TRAMADOL HYDROCHLORIDE
     Dosage: UNK
     Dates: start: 201501

REACTIONS (6)
  - Haematoma [Recovered/Resolved]
  - Nausea [Recovered/Resolved]
  - Electrocardiogram QT prolonged [Recovered/Resolved]
  - Drug interaction [Unknown]
  - Gastroenteritis clostridial [Recovered/Resolved]
  - Hypothyroidism [Recovered/Resolved]

NARRATIVE: CASE EVENT DATE: 201411
